FAERS Safety Report 8855647 (Version 1)
Quarter: 2012Q4

REPORT INFORMATION
  Report Type: Spontaneous
  Country: US (occurrence: None)
  Receive Date: 20121019
  Receipt Date: 20121019
  Transmission Date: 20130627
  Serious: Yes (Hospitalization)
  Sender: FDA-Public Use
  Company Number: None

PATIENT
  Sex: Female
  Weight: 62.14 kg

DRUGS (2)
  1. BENTYL [Suspect]
     Indication: ABDOMINAL PAIN
     Dosage: 20mg once IV
     Route: 042
     Dates: start: 20120731, end: 20120731
  2. BENTYL [Suspect]
     Indication: GASTROINTESTINAL PAIN
     Dosage: 20mg once IV
     Route: 042
     Dates: start: 20120731, end: 20120731

REACTIONS (6)
  - Dizziness [None]
  - Nausea [None]
  - Heart rate decreased [None]
  - Abdominal pain [None]
  - Abdominal distension [None]
  - Constipation [None]
